FAERS Safety Report 7206105-4 (Version None)
Quarter: 2010Q4

REPORT INFORMATION
  Report Type: 
  Country: None (occurrence: None)
  Receive Date: 20101229
  Receipt Date: 20101229
  Transmission Date: 20110411
  Serious: Yes (Hospitalization, Other)
  Sender: FDA-Public Use
  Company Number: None

PATIENT
  Sex: Male
  Weight: 81.6475 kg

DRUGS (1)
  1. SIMVASTATIN [Suspect]
     Indication: LOW DENSITY LIPOPROTEIN
     Dosage: 2 TABLETS/ TOTAL OF 40MG DAILY
     Dates: start: 20101202, end: 20101216

REACTIONS (5)
  - BALANCE DISORDER [None]
  - DIZZINESS [None]
  - MUSCULAR WEAKNESS [None]
  - QUALITY OF LIFE DECREASED [None]
  - VOMITING [None]
